FAERS Safety Report 25112021 (Version 1)
Quarter: 2025Q1

REPORT INFORMATION
  Report Type: Report from Study
  Country: CA (occurrence: CA)
  Receive Date: 20250324
  Receipt Date: 20250324
  Transmission Date: 20250409
  Serious: Yes (Other)
  Sender: AMGEN
  Company Number: CA-AMGEN-CANSL2024250559

PATIENT
  Sex: Male

DRUGS (1)
  1. IMDELLTRA [Suspect]
     Active Substance: TARLATAMAB-DLLE
     Indication: Small cell lung cancer
     Dosage: 10 MILLIGRAM, Q2WK (1 X 2 WEEKS)
     Route: 065
     Dates: start: 20241127

REACTIONS (11)
  - Dyspnoea at rest [Unknown]
  - Myalgia [Unknown]
  - Pain in extremity [Unknown]
  - Arthralgia [Unknown]
  - Dyspnoea exertional [Unknown]
  - Cough [Unknown]
  - Haemoptysis [Unknown]
  - Chest pain [Unknown]
  - Back pain [Unknown]
  - Ageusia [Unknown]
  - Alopecia [Unknown]
